FAERS Safety Report 4664801-7 (Version None)
Quarter: 2005Q2

REPORT INFORMATION
  Report Type: 
  Country: None (occurrence: None)
  Receive Date: 20050516
  Receipt Date: 20050428
  Transmission Date: 20051028
  Serious: Yes (Death)
  Sender: FDA-Public Use
  Company Number: DSA_26366_2005

PATIENT
  Age: 78 Year
  Sex: Male

DRUGS (5)
  1. ATIVAN SL [Suspect]
     Indication: RESTLESSNESS
     Dosage: 1 MG ONCE SL
     Route: 060
     Dates: start: 20040715, end: 20040715
  2. ATIVAN [Suspect]
     Indication: RESTLESSNESS
     Dosage: 4 MG ONCE SC
     Route: 058
     Dates: start: 20040715, end: 20040715
  3. MORPHINE [Suspect]
     Dosage: 1 MG Q4HR SC
     Route: 058
     Dates: end: 20040715
  4. METOCLOPRAMIDE [Concomitant]
  5. HYDROMORPHONE HCL [Concomitant]

REACTIONS (1)
  - DEATH [None]
